FAERS Safety Report 9300870 (Version 1)
Quarter: 2013Q2

REPORT INFORMATION
  Report Type: Spontaneous
  Country: US (occurrence: None)
  Receive Date: 20130520
  Receipt Date: 20130520
  Transmission Date: 20140414
  Serious: Yes (Other)
  Sender: FDA-Public Use
  Company Number: None

PATIENT
  Age: 56 Year
  Sex: Female
  Weight: 63.5 kg

DRUGS (1)
  1. ICY HOT [Suspect]
     Indication: MUSCLE STRAIN
     Dosage: 1  2   TOP
     Route: 061
     Dates: start: 20130514, end: 20130515

REACTIONS (2)
  - Burns second degree [None]
  - Blister [None]
